FAERS Safety Report 11143249 (Version 1)
Quarter: 2015Q2

REPORT INFORMATION
  Report Type: Spontaneous
  Country: US (occurrence: US)
  Receive Date: 20150526
  Receipt Date: 20150526
  Transmission Date: 20150821
  Serious: No
  Sender: FDA-Public Use
  Company Number: US-NOVEN PHARMACEUTICALS, INC.-US2015000151

PATIENT
  Age: 42 Year
  Sex: Female

DRUGS (6)
  1. TIZANIDINE (TIZANIDINE) [Concomitant]
     Active Substance: TIZANIDINE
     Indication: MUSCLE SPASMS
     Dosage: 4 MG, UNK
  2. OMEPRAZOLE. [Concomitant]
     Active Substance: OMEPRAZOLE
     Dosage: 40 MG, QD
  3. VITAMIN D [Concomitant]
     Active Substance: CHOLECALCIFEROL
     Dosage: 50000 UNITS, 2/WK
  4. MINIVELLE [Suspect]
     Active Substance: ESTRADIOL
     Indication: HYSTERECTOMY
     Dosage: 0.075 MG, UNK
     Route: 062
     Dates: start: 201405
  5. ASPIRIN. [Concomitant]
     Active Substance: ASPIRIN
  6. PLAQUENIL [Concomitant]
     Active Substance: HYDROXYCHLOROQUINE SULFATE
     Indication: SJOGREN^S SYNDROME
     Dosage: 200 MG, QD

REACTIONS (3)
  - Product adhesion issue [Unknown]
  - No adverse event [Unknown]
  - Drug dose omission [Unknown]
